FAERS Safety Report 5008883-1 (Version None)
Quarter: 2006Q2

REPORT INFORMATION
  Report Type: 
  Country: None (occurrence: None)
  Receive Date: 20060518
  Receipt Date: 20060427
  Transmission Date: 20061013
  Serious: Yes (Other)
  Sender: FDA-Public Use
  Company Number: USA040669803

PATIENT
  Age: 89 Year
  Sex: Female
  Weight: 48.4 kg

DRUGS (4)
  1. FORTEO [Suspect]
     Indication: OSTEOPOROSIS
     Dosage: 20 UG, DAILY (1/D), UNK
     Route: 065
     Dates: start: 20040524, end: 20051101
  2. FOSAMAX [Concomitant]
  3. CALCIUM CARBONATE (CALCIUM CARBONATE) [Concomitant]
  4. FORTEO PEN (FORTEO PEN) [Concomitant]

REACTIONS (6)
  - ARTHRALGIA [None]
  - BACK PAIN [None]
  - BREAST CANCER IN SITU [None]
  - BUTTOCK PAIN [None]
  - FIBROCYSTIC BREAST DISEASE [None]
  - PHARMACEUTICAL PRODUCT COMPLAINT [None]
